FAERS Safety Report 22140968 (Version 1)
Quarter: 2023Q1

REPORT INFORMATION
  Report Type: Spontaneous
  Country: US (occurrence: None)
  Receive Date: 20230324
  Receipt Date: 20230324
  Transmission Date: 20230418
  Serious: Yes (Hospitalization)
  Sender: FDA-Public Use
  Company Number: None

PATIENT
  Sex: Female

DRUGS (4)
  1. AMBRISENTAN [Suspect]
     Active Substance: AMBRISENTAN
     Indication: Pulmonary arterial hypertension
     Dosage: 10MG DAILY PO?
     Route: 048
     Dates: start: 202108
  2. TREPROSTINIL [Suspect]
     Active Substance: TREPROSTINIL
  3. AMBRISENTAN [Concomitant]
  4. TADALAFIL [Concomitant]

REACTIONS (3)
  - Vascular device infection [None]
  - Deep vein thrombosis [None]
  - Infusion site thrombosis [None]
